FAERS Safety Report 16188500 (Version 2)
Quarter: 2019Q2

REPORT INFORMATION
  Report Type: Report from Study
  Country: BR (occurrence: BR)
  Receive Date: 20190412
  Receipt Date: 20190430
  Transmission Date: 20190711
  Serious: Yes (Death, Other)
  Sender: FDA-Public Use
  Company Number: PHHY2019BR067143

PATIENT
  Age: 55 Year
  Sex: Male

DRUGS (1)
  1. VOTRIENT [Suspect]
     Active Substance: PAZOPANIB HYDROCHLORIDE
     Indication: RENAL CANCER
     Dosage: UNK
     Route: 065
     Dates: start: 20190301

REACTIONS (18)
  - Loss of consciousness [Fatal]
  - Asthenia [Not Recovered/Not Resolved]
  - Erythema [Unknown]
  - Platelet count decreased [Unknown]
  - Rash [Unknown]
  - Muscular weakness [Unknown]
  - Skin lesion [Unknown]
  - Metastases to central nervous system [Unknown]
  - Red blood cell count decreased [Unknown]
  - Oligodipsia [Unknown]
  - Cough [Unknown]
  - Dyspnoea [Unknown]
  - Petechiae [Unknown]
  - Decreased appetite [Unknown]
  - Ill-defined disorder [Fatal]
  - Metastases to lung [Unknown]
  - Rash pustular [Recovering/Resolving]
  - Pain of skin [Unknown]

NARRATIVE: CASE EVENT DATE: 201903
